FAERS Safety Report 17552007 (Version 2)
Quarter: 2020Q2

REPORT INFORMATION
  Report Type: Spontaneous
  Country: US (occurrence: US)
  Receive Date: 20200317
  Receipt Date: 20200624
  Transmission Date: 20200713
  Serious: No
  Sender: FDA-Public Use
  Company Number: US-ELI_LILLY_AND_COMPANY-US202003003950

PATIENT
  Age: 57 Year
  Sex: Female
  Weight: 58.96 kg

DRUGS (10)
  1. TROKENDI [Concomitant]
     Active Substance: TOPIRAMATE
  2. AIMOVIG [Concomitant]
     Active Substance: ERENUMAB-AOOE
     Indication: PRODUCT USED FOR UNKNOWN INDICATION
     Dosage: UNK, UNKNOWN
     Route: 065
  3. VICODIN [Concomitant]
     Active Substance: ACETAMINOPHEN\HYDROCODONE BITARTRATE
     Indication: PRODUCT USED FOR UNKNOWN INDICATION
     Dosage: UNK, UNKNOWN
     Route: 065
  4. BOTOX [Concomitant]
     Active Substance: ONABOTULINUMTOXINA
  5. SUMATRIPTAN. [Concomitant]
     Active Substance: SUMATRIPTAN
  6. TIZANIDINE. [Concomitant]
     Active Substance: TIZANIDINE
  7. REYVOW [Suspect]
     Active Substance: LASMIDITAN
     Indication: MIGRAINE
     Dosage: 100 MG, PRN
     Route: 048
     Dates: start: 20200306, end: 20200306
  8. FAMOTIDINE. [Concomitant]
     Active Substance: FAMOTIDINE
  9. MIRAPEX [Concomitant]
     Active Substance: PRAMIPEXOLE DIHYDROCHLORIDE
  10. BUSPAR [Concomitant]
     Active Substance: BUSPIRONE HYDROCHLORIDE

REACTIONS (6)
  - Asthenia [Recovered/Resolved]
  - Panic attack [Recovered/Resolved]
  - Drug ineffective [Unknown]
  - Feeling abnormal [Recovered/Resolved]
  - Palpitations [Unknown]
  - Dysarthria [Recovered/Resolved]
